FAERS Safety Report 11560867 (Version 1)
Quarter: 2015Q3

REPORT INFORMATION
  Report Type: Spontaneous
  Country: US (occurrence: US)
  Receive Date: 20150916
  Receipt Date: 20150916
  Transmission Date: 20151125
  Serious: No
  Sender: FDA-Public Use
  Company Number: US-ELI_LILLY_AND_COMPANY-US200810002242

PATIENT
  Sex: Female

DRUGS (2)
  1. CIPRO [Concomitant]
     Active Substance: CIPROFLOXACIN HYDROCHLORIDE
     Indication: EAR PAIN
  2. FORTEO [Suspect]
     Active Substance: TERIPARATIDE

REACTIONS (3)
  - Middle ear effusion [Recovered/Resolved]
  - Nausea [Not Recovered/Not Resolved]
  - Ear pain [Recovered/Resolved]
